FAERS Safety Report 4747638-X (Version None)
Quarter: 2005Q3

REPORT INFORMATION
  Report Type: 
  Country: None (occurrence: None)
  Receive Date: 20050818
  Receipt Date: 20050314
  Transmission Date: 20060218
  Serious: No
  Sender: FDA-Public Use
  Company Number: US-BRISTOL-MYERS SQUIBB COMPANY-12899563

PATIENT
  Age: 93 Year
  Sex: Female

DRUGS (4)
  1. TEQUIN [Suspect]
     Indication: LOBAR PNEUMONIA
     Route: 048
     Dates: start: 20050228, end: 20050303
  2. WARFARIN [Concomitant]
     Indication: ATRIAL FIBRILLATION
     Dosage: 2 MG ON TUES, THURS, SAT, SUN, 3 MG MON, WED, FRI
  3. PROMETHAZINE+DEXTROMETHORPHAN [Concomitant]
     Indication: COUGH
  4. PROMETHAZINE+DEXTROMETHORPHAN [Concomitant]
     Indication: NAUSEA

REACTIONS (1)
  - HALLUCINATION [None]
